FAERS Safety Report 19372204 (Version 1)
Quarter: 2021Q2

REPORT INFORMATION
  Report Type: Other
  Country: IT (occurrence: IT)
  Receive Date: 20210604
  Receipt Date: 20210604
  Transmission Date: 20210717
  Serious: Yes (Death)
  Sender: FDA-Public Use
  Company Number: IT-ROCHE-2840591

PATIENT
  Age: 13 Year
  Sex: Male

DRUGS (17)
  1. THIOPENTAL [Concomitant]
     Active Substance: THIOPENTAL
     Dosage: 2?5 MG/KG/HOUR
  2. PERAMPANEL [Concomitant]
     Active Substance: PERAMPANEL
  3. LACOSAMIDE. [Concomitant]
     Active Substance: LACOSAMIDE
  4. VALPROATE [Concomitant]
     Active Substance: VALPROIC ACID
  5. CLOBAZAM. [Concomitant]
     Active Substance: CLOBAZAM
  6. TOPIRAMATE. [Concomitant]
     Active Substance: TOPIRAMATE
  7. KETAMINE [Concomitant]
     Active Substance: KETAMINE
     Route: 042
  8. LEVETIRACETAM. [Concomitant]
     Active Substance: LEVETIRACETAM
  9. PHENYTOIN. [Concomitant]
     Active Substance: PHENYTOIN
  10. BORTEZOMIB. [Concomitant]
     Active Substance: BORTEZOMIB
  11. SIROLIMUS. [Concomitant]
     Active Substance: SIROLIMUS
  12. MIDAZOLAM. [Concomitant]
     Active Substance: MIDAZOLAM
     Route: 042
  13. LIDOCAIN [Concomitant]
     Active Substance: LIDOCAINE
     Route: 042
  14. PHENOBARBITAL. [Concomitant]
     Active Substance: PHENOBARBITAL
  15. RITUXIMAB. [Suspect]
     Active Substance: RITUXIMAB
     Indication: ENCEPHALITIS AUTOIMMUNE
     Route: 065
  16. CARBAMAZEPINE. [Concomitant]
     Active Substance: CARBAMAZEPINE
  17. LACOSAMIDE. [Concomitant]
     Active Substance: LACOSAMIDE

REACTIONS (2)
  - Necrotising colitis [Fatal]
  - Septic shock [Fatal]
